FAERS Safety Report 5005616-X (Version None)
Quarter: 2006Q2

REPORT INFORMATION
  Report Type: 
  Country: None (occurrence: None)
  Receive Date: 20060515
  Receipt Date: 20060502
  Transmission Date: 20061013
  Serious: Yes (Hospitalization)
  Sender: FDA-Public Use
  Company Number: 2006059828

PATIENT
  Age: 58 Year
  Sex: Female

DRUGS (4)
  1. SUTENT (SUNITINIB MALATE)SU-011,248 [Suspect]
     Indication: RENAL CELL CARCINOMA STAGE UNSPECIFIED
     Dosage: 50 MG (50 MG, CYCLIC), ORAL
     Route: 048
     Dates: start: 20060322
  2. DEXAMETHASONE [Concomitant]
  3. CO-CODAMOL (CODEINE PHOSPHATE, PARACETAMOL) [Concomitant]
  4. TRAMADOL HCL [Concomitant]

REACTIONS (4)
  - APHAGIA [None]
  - MOUTH ULCERATION [None]
  - ORAL CANDIDIASIS [None]
  - PAIN [None]
